FAERS Safety Report 13800626 (Version 10)
Quarter: 2018Q2

REPORT INFORMATION
  Report Type: Spontaneous
  Country: US (occurrence: US)
  Receive Date: 20170727
  Receipt Date: 20180614
  Transmission Date: 20180711
  Serious: Yes (Hospitalization, Other)
  Sender: FDA-Public Use
  Company Number: US-PFIZER INC-2017324681

PATIENT
  Age: 15 Year
  Sex: Male
  Weight: 57 kg

DRUGS (7)
  1. SODIUM BICARBONATE. [Suspect]
     Active Substance: SODIUM BICARBONATE
     Indication: LOCAL ANAESTHESIA
     Dosage: UNK (ONCE)
     Route: 030
     Dates: start: 20170611
  2. SODIUM BICARBONATE. [Suspect]
     Active Substance: SODIUM BICARBONATE
     Dosage: UNK
  3. LIDOCAINE. [Concomitant]
     Active Substance: LIDOCAINE
     Indication: ANAESTHESIA
     Dosage: WE ADD 5 CC SODIUM BICARBONATE TO EACH 50 ML BOTTLE OF LIDOCAINE W/EPINEPHRINE 3.6 CC ADMINISTERED
     Route: 058
     Dates: start: 20170611, end: 20170612
  4. DOXYCYCLINE. [Concomitant]
     Active Substance: DOXYCYCLINE
     Indication: ACNE
     Dosage: UNK
     Dates: start: 20160910, end: 20180203
  5. DOXYCYCLINE. [Concomitant]
     Active Substance: DOXYCYCLINE
     Indication: FOLLICULITIS
     Dosage: 150 MG, DAILY
     Dates: start: 20170516
  6. SODIUM BICARBONATE. [Suspect]
     Active Substance: SODIUM BICARBONATE
     Indication: SURGERY
     Dosage: 5 ML, UNK (SVD N-R 4%)
     Dates: start: 201106, end: 201206
  7. SODIUM BICARBONATE. [Suspect]
     Active Substance: SODIUM BICARBONATE
     Indication: DERMATOFIBROMA REMOVAL
     Dosage: 5 ML, SINGLE (SVD N-R 4%)
     Dates: start: 20170612, end: 20170612

REACTIONS (3)
  - Staphylococcal infection [Recovered/Resolved]
  - Product contamination microbial [Unknown]
  - Product use issue [Unknown]

NARRATIVE: CASE EVENT DATE: 20170616
